FAERS Safety Report 6795354-5 (Version None)
Quarter: 2010Q2

REPORT INFORMATION
  Report Type: 
  Country: None (occurrence: None)
  Receive Date: 20100520
  Receipt Date: 20090702
  Transmission Date: 20101027
  Serious: Yes (Other)
  Sender: FDA-Public Use
  Company Number: 2009237712

PATIENT
  Age: 67 Year
  Sex: Female

DRUGS (5)
  1. PROVERA [Suspect]
     Indication: HORMONE REPLACEMENT THERAPY
     Dosage: 10 MG, ORAL
     Route: 048
     Dates: start: 19800101, end: 19990101
  2. PREMARIN [Suspect]
     Indication: HORMONE REPLACEMENT THERAPY
     Dosage: 0.625 MG
     Dates: start: 19700101, end: 19990101
  3. PREMPRO [Suspect]
     Indication: HORMONE REPLACEMENT THERAPY
     Dates: start: 19990101, end: 20020101
  4. FEMHRT [Suspect]
     Indication: HORMONE REPLACEMENT THERAPY
     Dates: start: 20000101, end: 20020101
  5. PROMETRIUM [Suspect]
     Indication: HORMONE REPLACEMENT THERAPY

REACTIONS (1)
  - BREAST CANCER FEMALE [None]
